FAERS Safety Report 7982225-1 (Version None)
Quarter: 2011Q4

REPORT INFORMATION
  Report Type: 
  Country: None (occurrence: None)
  Receive Date: 20111213
  Receipt Date: 20111130
  Transmission Date: 20120403
  Serious: Yes (Other)
  Sender: FDA-Public Use
  Company Number: 2011AP002910

PATIENT
  Age: 73 Year
  Sex: Female

DRUGS (7)
  1. ASPIRIN [Concomitant]
  2. CLARITHROMYCIN [Suspect]
     Indication: CELLULITIS
     Dosage: 500 MG; ;PO
     Route: 048
     Dates: start: 20111027, end: 20111102
  3. LOSARTAN POTASSIUM [Concomitant]
  4. CLARITHROMYCIN [Suspect]
     Indication: CELLULITIS
     Dosage: 500 MG; IV
     Route: 042
     Dates: start: 20111026, end: 20111027
  5. GLICLAZIDE [Concomitant]
  6. AMLODIPINE [Concomitant]
  7. ACETAMINOPHEN [Concomitant]

REACTIONS (4)
  - RASH MACULAR [None]
  - ERYTHEMA [None]
  - PRURITUS [None]
  - RASH GENERALISED [None]
